FAERS Safety Report 5622854-3 (Version None)
Quarter: 2008Q1

REPORT INFORMATION
  Report Type: 
  Country: None (occurrence: None)
  Receive Date: 20080208
  Receipt Date: 20080208
  Transmission Date: 20080703
  Serious: No
  Sender: FDA-Public Use
  Company Number: None

PATIENT
  Age: 65 Year
  Sex: Female
  Weight: 64.4108 kg

DRUGS (2)
  1. MIDAZOLAM HCL [Suspect]
     Indication: PREOPERATIVE CARE
     Dosage: X2 DOSES IV
     Route: 042
     Dates: start: 20080113
  2. MIDAZOLAM HCL [Suspect]
     Indication: SURGERY
     Dosage: X2 DOSES IV
     Route: 042
     Dates: start: 20080113

REACTIONS (2)
  - POST PROCEDURAL COMPLICATION [None]
  - SOMNOLENCE [None]
